FAERS Safety Report 5767304-1 (Version None)
Quarter: 2008Q2

REPORT INFORMATION
  Report Type: 
  Country: None (occurrence: None)
  Receive Date: 20080612
  Receipt Date: 20080604
  Transmission Date: 20081010
  Serious: Yes (Hospitalization)
  Sender: FDA-Public Use
  Company Number: US-BAYER-200825002NA

PATIENT
  Age: 27 Year
  Sex: Male
  Weight: 40 kg

DRUGS (9)
  1. CAMPATH [Suspect]
     Indication: ACUTE LYMPHOCYTIC LEUKAEMIA
     Dosage: AS USED: 5 MG
     Route: 058
     Dates: start: 20080407, end: 20080525
  2. METHOTREXATE [Suspect]
     Indication: ACUTE LYMPHOCYTIC LEUKAEMIA
     Dosage: AS USED: 100 MG/M2
     Route: 042
     Dates: start: 20080407, end: 20080428
  3. METHOTREXATE [Suspect]
     Route: 042
     Dates: start: 20080509
  4. VINCRISTINE [Suspect]
     Indication: ACUTE LYMPHOCYTIC LEUKAEMIA
     Dosage: AS USED: 2 MG
     Route: 040
     Dates: start: 20080408, end: 20080429
  5. VINCRISTINE [Suspect]
     Route: 040
     Dates: start: 20080510
  6. L-ASPARAGINASE [Suspect]
     Indication: ACUTE LYMPHOCYTIC LEUKAEMIA
     Dosage: AS USED: 500 IU/KG
     Route: 030
     Dates: start: 20080408, end: 20080429
  7. L-ASPARAGINASE [Suspect]
     Route: 030
     Dates: start: 20080510
  8. DEXAMETHASONE TAB [Suspect]
     Indication: ACUTE LYMPHOCYTIC LEUKAEMIA
     Dosage: TOTAL DAILY DOSE: 6 MG/M2
     Route: 048
     Dates: start: 20080407, end: 20080507
  9. DEXAMETHASONE TAB [Suspect]
     Route: 048
     Dates: start: 20080518

REACTIONS (4)
  - DYSPHAGIA [None]
  - POOR DENTAL CONDITION [None]
  - PYREXIA [None]
  - STOMATITIS [None]
